FAERS Safety Report 23117172 (Version 1)
Quarter: 2023Q4

REPORT INFORMATION
  Report Type: Report from Study
  Country: US (occurrence: US)
  Receive Date: 20231027
  Receipt Date: 20231027
  Transmission Date: 20240110
  Serious: Yes (Hospitalization, Other)
  Sender: FDA-Public Use
  Company Number: US-002147023-NVSC2023US229391

PATIENT
  Sex: Male
  Weight: 144.24 kg

DRUGS (1)
  1. COSENTYX [Suspect]
     Active Substance: SECUKINUMAB
     Indication: Psoriasis
     Dosage: UNK, QMO
     Route: 058
     Dates: start: 2018

REACTIONS (6)
  - Laryngeal cancer stage III [Recovered/Resolved]
  - Psoriasis [Unknown]
  - Fall [Unknown]
  - Nerve compression [Unknown]
  - Intervertebral disc protrusion [Unknown]
  - Polyp [Unknown]

NARRATIVE: CASE EVENT DATE: 20190101
